FAERS Safety Report 24456179 (Version 2)
Quarter: 2024Q4

REPORT INFORMATION
  Report Type: Spontaneous
  Country: KR (occurrence: KR)
  Receive Date: 20241017
  Receipt Date: 20241018
  Transmission Date: 20250115
  Serious: No
  Sender: ROCHE
  Company Number: KR-ROCHE-3502909

PATIENT
  Age: 74 Year
  Sex: Male
  Weight: 62.5 kg

DRUGS (1)
  1. MABTHERA [Suspect]
     Active Substance: RITUXIMAB
     Indication: Product used for unknown indication
     Route: 058
     Dates: start: 20221205, end: 20221205

REACTIONS (1)
  - Larynx irritation [Recovered/Resolved]

NARRATIVE: CASE EVENT DATE: 20221205
